FAERS Safety Report 11573122 (Version 1)
Quarter: 2015Q3

REPORT INFORMATION
  Report Type: Report from Study
  Country: US (occurrence: US)
  Receive Date: 20150929
  Receipt Date: 20150929
  Transmission Date: 20151125
  Serious: No
  Sender: FDA-Public Use
  Company Number: US-AMGEN-USASL2015095134

PATIENT
  Age: 37 Year
  Sex: Female

DRUGS (2)
  1. METHOTREXATE (METHOTREXATE SODIUM) [Concomitant]
     Active Substance: METHOTREXATE SODIUM
     Dosage: UNK
  2. ENBREL [Suspect]
     Active Substance: ETANERCEPT
     Indication: PSORIATIC ARTHROPATHY
     Dosage: 50 MG, QWK
     Route: 065
     Dates: start: 20150815

REACTIONS (11)
  - Aphthous ulcer [Recovering/Resolving]
  - Joint range of motion decreased [Recovering/Resolving]
  - Pain [Not Recovered/Not Resolved]
  - Injection site bruising [Not Recovered/Not Resolved]
  - Injection site erythema [Not Recovered/Not Resolved]
  - Lymphadenopathy [Recovering/Resolving]
  - Oral infection [Recovering/Resolving]
  - Pain in extremity [Unknown]
  - Back pain [Not Recovered/Not Resolved]
  - Psoriasis [Recovering/Resolving]
  - Joint swelling [Unknown]

NARRATIVE: CASE EVENT DATE: 2015
